FAERS Safety Report 4748490-9 (Version None)
Quarter: 2005Q3

REPORT INFORMATION
  Report Type: 
  Country: None (occurrence: None)
  Receive Date: 20050818
  Receipt Date: 20050818
  Transmission Date: 20060218
  Serious: Yes (Life-Threatening)
  Sender: FDA-Public Use
  Company Number: None

PATIENT
  Age: 29 Year
  Sex: Female
  Weight: 86.1834 kg

DRUGS (1)
  1. MAGNESIUM SULFATE [Suspect]
     Indication: ECLAMPSIA
     Dosage: 2 GM/ HR
     Dates: start: 20050816, end: 20050816

REACTIONS (4)
  - BLOOD MAGNESIUM INCREASED [None]
  - DRUG DISPENSING ERROR [None]
  - INFUSION RELATED REACTION [None]
  - MEDICATION ERROR [None]
